FAERS Safety Report 8489787-9 (Version None)
Quarter: 2012Q3

REPORT INFORMATION
  Report Type: 
  Country: None (occurrence: None)
  Receive Date: 20120705
  Receipt Date: 20120626
  Transmission Date: 20120928
  Serious: No
  Sender: FDA-Public Use
  Company Number: US-B.I. PHARMACEUTICALS,INC./RIDGEFIELD-2012-BP-06525BP

PATIENT
  Age: 68 Year
  Sex: Female
  Weight: 62.7 kg

DRUGS (6)
  1. TRADJENTA [Suspect]
     Indication: DIABETES MELLITUS
     Dosage: 5 MG
     Route: 048
     Dates: start: 20111213, end: 20120216
  2. LOVAZA [Concomitant]
  3. METFORMIN HCL [Concomitant]
  4. CRESTOR [Concomitant]
     Indication: BLOOD CHOLESTEROL INCREASED
  5. ZANTAC [Concomitant]
  6. NIACIN [Concomitant]
     Indication: BLOOD CHOLESTEROL INCREASED

REACTIONS (1)
  - PANCREATITIS [None]
